FAERS Safety Report 24356588 (Version 1)
Quarter: 2024Q3

REPORT INFORMATION
  Report Type: Spontaneous
  Country: GB (occurrence: GB)
  Receive Date: 20240924
  Receipt Date: 20240924
  Transmission Date: 20241016
  Serious: Yes (Life-Threatening, Hospitalization, Disabling)
  Sender: ROCHE
  Company Number: None

PATIENT
  Age: 26 Year
  Sex: Male

DRUGS (13)
  1. POLATUZUMAB VEDOTIN [Suspect]
     Active Substance: POLATUZUMAB VEDOTIN
     Indication: Adverse drug reaction
     Dosage: 112MG EVERY 3 WEEKS FOR 6 CYCLES
     Route: 065
     Dates: start: 20231127, end: 20240316
  2. RITUXIMAB [Concomitant]
     Active Substance: RITUXIMAB
     Indication: Adverse drug reaction
  3. CYCLOPHOSPHAMIDE [Concomitant]
     Active Substance: CYCLOPHOSPHAMIDE
     Indication: Adverse drug reaction
  4. PREDNISOLONE [Concomitant]
     Active Substance: PREDNISOLONE
     Indication: Adverse drug reaction
  5. DOXORUBICIN [Concomitant]
     Active Substance: DOXORUBICIN
     Indication: Adverse drug reaction
  6. ALLOPURINOL [Concomitant]
     Active Substance: ALLOPURINOL
  7. METOCLOPRAMIDE [Concomitant]
     Active Substance: METOCLOPRAMIDE
  8. ONDANSETRON [Concomitant]
     Active Substance: ONDANSETRON
  9. COTRIMOXAZOLE [Concomitant]
     Active Substance: SULFAMETHOXAZOLE\TRIMETHOPRIM
  10. RAMIPRIL [Concomitant]
     Active Substance: RAMIPRIL
  11. BISOPROLOL [Concomitant]
     Active Substance: BISOPROLOL\BISOPROLOL FUMARATE
  12. FILGRASTIM [Concomitant]
     Active Substance: FILGRASTIM
  13. EMPAGLIFLOZIN [Concomitant]
     Active Substance: EMPAGLIFLOZIN

REACTIONS (1)
  - Mycoplasma infection [Recovering/Resolving]
